FAERS Safety Report 6719418-7 (Version None)
Quarter: 2010Q2

REPORT INFORMATION
  Report Type: 
  Country: None (occurrence: None)
  Receive Date: 20100507
  Receipt Date: 20100429
  Transmission Date: 20101027
  Serious: Yes (Other)
  Sender: FDA-Public Use
  Company Number: 2010SP024878

PATIENT
  Sex: Female
  Weight: 80.7403 kg

DRUGS (1)
  1. IMPLANON [Suspect]
     Indication: CONTRACEPTION
     Dosage: 1 DF SBDE
     Route: 059
     Dates: start: 20090115

REACTIONS (13)
  - AMENORRHOEA [None]
  - BACK PAIN [None]
  - BREAST ENLARGEMENT [None]
  - COMPLICATION OF DEVICE REMOVAL [None]
  - HEADACHE [None]
  - HYPOTHYROIDISM [None]
  - INSOMNIA [None]
  - NAUSEA [None]
  - PAIN IN EXTREMITY [None]
  - SKIN STRIAE [None]
  - UNEVALUABLE EVENT [None]
  - VULVOVAGINAL PAIN [None]
  - WEIGHT INCREASED [None]
